FAERS Safety Report 5528217-3 (Version None)
Quarter: 2007Q4

REPORT INFORMATION
  Report Type: 
  Country: None (occurrence: None)
  Receive Date: 20071128
  Receipt Date: 20071119
  Transmission Date: 20080405
  Serious: Yes (Life-Threatening)
  Sender: FDA-Public Use
  Company Number: GB-PFIZER INC-2007097667

PATIENT
  Age: 44 Year
  Sex: Female

DRUGS (2)
  1. MISOPROSTOL [Suspect]
     Route: 015
  2. ANTIBIOTICS [Concomitant]

REACTIONS (4)
  - HYPERTENSION [None]
  - INCORRECT ROUTE OF DRUG ADMINISTRATION [None]
  - LEFT VENTRICULAR FAILURE [None]
  - PRE-ECLAMPSIA [None]
